FAERS Safety Report 20195339 (Version 3)
Quarter: 2023Q2

REPORT INFORMATION
  Report Type: Spontaneous
  Country: US (occurrence: None)
  Receive Date: 20211216
  Receipt Date: 20230407
  Transmission Date: 20230721
  Serious: Yes (Hospitalization, Disabling, Other)
  Sender: FDA-Public Use
  Company Number: 2021A872135

PATIENT
  Age: 19433 Day
  Sex: Female
  Weight: 92.5 kg

DRUGS (32)
  1. NEXIUM [Suspect]
     Active Substance: ESOMEPRAZOLE MAGNESIUM
     Indication: Gastrooesophageal reflux disease
     Route: 048
     Dates: start: 20130304, end: 20130604
  2. NEXIUM [Suspect]
     Active Substance: ESOMEPRAZOLE MAGNESIUM
     Indication: Gastrooesophageal reflux disease
     Route: 048
     Dates: start: 2016, end: 20190731
  3. PROTONIX [Suspect]
     Active Substance: PANTOPRAZOLE SODIUM
     Indication: Gastrooesophageal reflux disease
     Dates: start: 20161113, end: 20180731
  4. PROTONIX [Suspect]
     Active Substance: PANTOPRAZOLE SODIUM
     Indication: Gastrooesophageal reflux disease
     Dosage: GENERIC
     Dates: start: 20190731
  5. PROTONIX [Suspect]
     Active Substance: PANTOPRAZOLE SODIUM
     Indication: Gastrooesophageal reflux disease
     Dosage: GENERIC
  6. TRIAMTERENE [Concomitant]
     Active Substance: TRIAMTERENE
  7. FIORICET [Concomitant]
     Active Substance: ACETAMINOPHEN\BUTALBITAL\CAFFEINE
     Indication: Migraine
     Dates: start: 2022
  8. DICLOFENAC [Concomitant]
     Active Substance: DICLOFENAC
     Indication: Inflammation
     Dates: start: 2020
  9. AZITHROMYCIN [Concomitant]
     Active Substance: AZITHROMYCIN
     Indication: Antibiotic therapy
     Dates: start: 2016, end: 2021
  10. LEVOFLOXACIN [Concomitant]
     Active Substance: LEVOFLOXACIN
     Indication: Urinary tract infection
     Dates: start: 2018, end: 2021
  11. LEVOFLOXACIN [Concomitant]
     Active Substance: LEVOFLOXACIN
     Indication: Chronic kidney disease
     Dates: start: 2018, end: 2021
  12. BUMETANIDE [Concomitant]
     Active Substance: BUMETANIDE
     Indication: Diuretic therapy
     Dates: start: 2020
  13. ROSUVASTATIN [Concomitant]
     Active Substance: ROSUVASTATIN
     Indication: Blood cholesterol increased
     Dates: start: 2020, end: 2021
  14. CIPROFLOXACIN [Concomitant]
     Active Substance: CIPROFLOXACIN
     Indication: Antibiotic therapy
     Dates: start: 2015, end: 2020
  15. TRAMADOL [Concomitant]
     Active Substance: TRAMADOL
     Indication: Pain
     Dates: start: 2018, end: 2020
  16. TRIAMTERENE [Concomitant]
     Active Substance: TRIAMTERENE
     Indication: Diuretic therapy
     Dates: start: 2019
  17. AMOXICILLIN [Concomitant]
     Active Substance: AMOXICILLIN
     Indication: Infection
     Dates: start: 2019
  18. DOXYCYCLINE [Concomitant]
     Active Substance: DOXYCYCLINE
     Indication: Infection
     Dates: start: 2019
  19. PENICILLIN [Concomitant]
     Active Substance: PENICILLIN
     Indication: Antibiotic therapy
     Dates: start: 2020
  20. NAPROXEN [Concomitant]
     Active Substance: NAPROXEN
     Indication: Pain
     Dates: start: 2020
  21. NAPROXEN [Concomitant]
     Active Substance: NAPROXEN
     Indication: Inflammation
     Dates: start: 2020
  22. SULFAMETHOXI [Concomitant]
     Indication: Infection
     Dates: start: 20190213
  23. IBUPROFEN [Concomitant]
     Active Substance: IBUPROFEN
     Indication: Pain
     Dates: start: 2013, end: 2019
  24. ACETAMINOPHEN [Concomitant]
     Active Substance: ACETAMINOPHEN
     Indication: Pain
     Dates: start: 2015, end: 2020
  25. VITAMIN D2 [Concomitant]
     Active Substance: ERGOCALCIFEROL
     Indication: Hypovitaminosis
     Dates: start: 2018
  26. FAMOTIDINE [Concomitant]
     Active Substance: FAMOTIDINE
     Dates: start: 2014
  27. RANITIDINE [Concomitant]
     Active Substance: RANITIDINE
     Dates: start: 2019
  28. TUMS [Concomitant]
     Active Substance: CALCIUM CARBONATE
     Dosage: 2 TABLETS AT MEALS
     Dates: start: 2021
  29. FERROUS SULFATE [Concomitant]
     Active Substance: FERROUS SULFATE
     Dosage: 2 TABLETS AT MEALS
     Dates: start: 2021
  30. COLACE [Concomitant]
     Active Substance: DOCUSATE SODIUM
     Dosage: 2 TABLETS AT MEALS
     Dates: start: 2021
  31. DECADRON [Concomitant]
     Active Substance: DEXAMETHASONE
     Dosage: 2 TABLETS AT MEALS
     Dates: start: 2021
  32. HYDROCODONE [Concomitant]
     Active Substance: HYDROCODONE
     Dosage: 2 TABLETS AT MEALS
     Dates: start: 2021

REACTIONS (4)
  - Chronic kidney disease [Not Recovered/Not Resolved]
  - End stage renal disease [Not Recovered/Not Resolved]
  - Renal failure [Unknown]
  - Hyperparathyroidism secondary [Unknown]

NARRATIVE: CASE EVENT DATE: 20181219
